FAERS Safety Report 7626843-9 (Version None)
Quarter: 2011Q3

REPORT INFORMATION
  Report Type: 
  Country: None (occurrence: None)
  Receive Date: 20110721
  Receipt Date: 20101130
  Transmission Date: 20111222
  Serious: No
  Sender: FDA-Public Use
  Company Number: US-BAYER-2011-004499

PATIENT
  Sex: Female

DRUGS (2)
  1. ACETAMINOPHEN [Concomitant]
     Dosage: 500-1000MG EVERY OTHER DAY TO BETASERON INJECTION.
     Route: 048
  2. BETASERON [Suspect]
     Indication: RELAPSING-REMITTING MULTIPLE SCLEROSIS
     Dosage: 4 MIU, QOD
     Route: 058
     Dates: start: 20101106

REACTIONS (1)
  - INJECTION SITE HAEMATOMA [None]
